FAERS Safety Report 8509467-0 (Version None)
Quarter: 2012Q3

REPORT INFORMATION
  Report Type: 
  Country: None (occurrence: None)
  Receive Date: 20120713
  Receipt Date: 20090427
  Transmission Date: 20120928
  Serious: Yes (Other)
  Sender: FDA-Public Use
  Company Number: TR-ROCHE-GNE282622

PATIENT
  Sex: Male

DRUGS (1)
  1. XOLAIR [Suspect]
     Indication: ASTHMA
     Dosage: 225 MG, 1/WEEK
     Route: 058
     Dates: start: 20081010, end: 20090403

REACTIONS (5)
  - BACK PAIN [None]
  - PNEUMONIA [None]
  - INFLUENZA [None]
  - CHEST PAIN [None]
  - INFECTION [None]
